FAERS Safety Report 7764971-8 (Version None)
Quarter: 2011Q3

REPORT INFORMATION
  Report Type: 
  Country: None (occurrence: None)
  Receive Date: 20110921
  Receipt Date: 20110915
  Transmission Date: 20111222
  Serious: Yes (Hospitalization, Other)
  Sender: FDA-Public Use
  Company Number: DK-PFIZER INC-2011213306

PATIENT

DRUGS (14)
  1. ZEVALIN [Suspect]
     Indication: B-CELL LYMPHOMA RECURRENT
     Dates: start: 20060901, end: 20060901
  2. PREDNISONE [Suspect]
     Dosage: UNK
     Dates: start: 20080115
  3. RITUXIMAB [Suspect]
     Dosage: UNK
     Dates: start: 20060215
  4. RITUXIMAB [Suspect]
     Indication: B-CELL LYMPHOMA RECURRENT
     Dates: start: 20060901
  5. ZEVALIN [Suspect]
     Dosage: UNK
     Dates: start: 20060215
  6. CYCLOPHOSPHAMIDE [Suspect]
     Dosage: UNK
     Dates: start: 20050110
  7. VINCRISTINE [Suspect]
     Indication: B-CELL LYMPHOMA RECURRENT
     Dates: start: 20060901
  8. YTTRIUM (90 Y) [Suspect]
     Indication: B-CELL LYMPHOMA RECURRENT
     Dates: start: 20060901, end: 20060901
  9. CYCLOPHOSPHAMIDE [Suspect]
     Indication: B-CELL LYMPHOMA RECURRENT
     Dates: start: 20060901
  10. PREDNISONE [Suspect]
     Indication: B-CELL LYMPHOMA RECURRENT
     Dates: start: 20060901
  11. RITUXIMAB [Suspect]
     Dosage: UNK
     Dates: start: 20050110
  12. DOXORUBICIN HCL [Suspect]
     Indication: B-CELL LYMPHOMA RECURRENT
     Dates: start: 20060901
  13. YTTRIUM (90 Y) [Suspect]
     Dosage: UNK
     Dates: start: 20060215, end: 20060215
  14. RITUXIMAB [Suspect]
     Dosage: UNK
     Dates: start: 20080115

REACTIONS (1)
  - MYELODYSPLASTIC SYNDROME [None]
